FAERS Safety Report 8415287-8 (Version None)
Quarter: 2012Q2

REPORT INFORMATION
  Report Type: 
  Country: None (occurrence: None)
  Receive Date: 20120606
  Receipt Date: 20120601
  Transmission Date: 20120825
  Serious: No
  Sender: FDA-Public Use
  Company Number: US-PFIZER INC-2012132703

PATIENT
  Sex: Female
  Weight: 58.9 kg

DRUGS (3)
  1. LYRICA [Suspect]
     Indication: NERVE COMPRESSION
     Dosage: 50 MG, 1X/DAY
     Route: 048
     Dates: start: 20120601
  2. SYNTHROID [Concomitant]
     Indication: THROAT CANCER
     Dosage: UNK
  3. NYSTATIN [Concomitant]
     Dosage: UNK

REACTIONS (4)
  - ASTHENIA [None]
  - TREMOR [None]
  - MUSCULAR WEAKNESS [None]
  - DYSKINESIA [None]
